FAERS Safety Report 17122268 (Version 2)
Quarter: 2020Q1

REPORT INFORMATION
  Report Type: Report from Study
  Country: JP (occurrence: JP)
  Receive Date: 20191206
  Receipt Date: 20200110
  Transmission Date: 20200409
  Serious: Yes (Death)
  Sender: FDA-Public Use
  Company Number: JP-ACTELION-A-CH2019-198900

PATIENT
  Age: 75 Year
  Sex: Male

DRUGS (11)
  1. OPSUMIT [Suspect]
     Active Substance: MACITENTAN
     Indication: PULMONARY ARTERIAL HYPERTENSION
     Dosage: 5 MG, QD
     Route: 048
     Dates: start: 20181001, end: 20181003
  2. REVATIO [Concomitant]
     Active Substance: SILDENAFIL CITRATE
  3. FUROSEMIDE. [Concomitant]
     Active Substance: FUROSEMIDE
  4. OPSUMIT [Suspect]
     Active Substance: MACITENTAN
     Dosage: 10 MG, QD
     Route: 048
     Dates: start: 20181004, end: 20190628
  5. WARFARIN [Concomitant]
     Active Substance: WARFARIN
  6. FEBURIC [Concomitant]
     Active Substance: FEBUXOSTAT
  7. DOBUTAMINE [Concomitant]
     Active Substance: DOBUTAMINE HYDROCHLORIDE
  8. CLARITHROMYCINE [Concomitant]
     Active Substance: CLARITHROMYCIN
  9. ULTIBRO [Concomitant]
     Active Substance: GLYCOPYRRONIUM\INDACATEROL
  10. AMBROXOL [Concomitant]
     Active Substance: AMBROXOL
  11. OXYGEN. [Concomitant]
     Active Substance: OXYGEN

REACTIONS (2)
  - Death [Fatal]
  - White blood cell count increased [Not Recovered/Not Resolved]

NARRATIVE: CASE EVENT DATE: 20181228
